FAERS Safety Report 14896970 (Version 1)
Quarter: 2018Q2

REPORT INFORMATION
  Report Type: Spontaneous
  Country: US (occurrence: US)
  Receive Date: 20180427
  Receipt Date: 20180427
  Transmission Date: 20180711
  Serious: Yes (Other)
  Sender: FDA-Public Use
  Company Number: None

PATIENT
  Age: 48 Year
  Sex: Female

DRUGS (1)
  1. OCREVUS [Suspect]
     Active Substance: OCRELIZUMAB
     Indication: MULTIPLE SCLEROSIS
     Dosage: 300MG/10MG Q (6) SIX MONTHS INTRAVENOUSLY
     Route: 042
     Dates: start: 20171010

REACTIONS (1)
  - Fall [None]

NARRATIVE: CASE EVENT DATE: 20180424
